FAERS Safety Report 17703788 (Version 4)
Quarter: 2021Q1

REPORT INFORMATION
  Report Type: Spontaneous
  Country: US (occurrence: US)
  Receive Date: 20200424
  Receipt Date: 20210118
  Transmission Date: 20210419
  Serious: Yes (Other)
  Sender: FDA-Public Use
  Company Number: US-GILEAD-2020-0460165

PATIENT
  Age: 54 Year
  Sex: Male
  Weight: 78.01 kg

DRUGS (53)
  1. VANCOMYCIN [Concomitant]
     Active Substance: VANCOMYCIN
  2. SELZENTRY [Concomitant]
     Active Substance: MARAVIROC
  3. SUSTIVA [Concomitant]
     Active Substance: EFAVIRENZ
  4. NORVIR [Concomitant]
     Active Substance: RITONAVIR
  5. AZITHROMYCIN ANHYDROUS. [Concomitant]
     Active Substance: AZITHROMYCIN ANHYDROUS
  6. VITAMIN D [VITAMIN D NOS] [Concomitant]
     Active Substance: VITAMIN D NOS
  7. VERAPAMIL [Concomitant]
     Active Substance: VERAPAMIL HYDROCHLORIDE
  8. DEMEROL [Concomitant]
     Active Substance: MEPERIDINE HYDROCHLORIDE
  9. DICLOFENAC [Concomitant]
     Active Substance: DICLOFENAC
  10. FLAGYL [Concomitant]
     Active Substance: METRONIDAZOLE\METRONIDAZOLE HYDROCHLORIDE
  11. NAPROXEN. [Concomitant]
     Active Substance: NAPROXEN
  12. FLUCONAZOLE. [Concomitant]
     Active Substance: FLUCONAZOLE
  13. VANTIN [CEFPODOXIME PROXETIL] [Concomitant]
  14. VIDEX EC [Concomitant]
     Active Substance: DIDANOSINE
  15. VALACYCLOVIR [Concomitant]
     Active Substance: VALACYCLOVIR HYDROCHLORIDE
  16. BIKTARVY [Concomitant]
     Active Substance: BICTEGRAVIR SODIUM\EMTRICITABINE\TENOFOVIR ALAFENAMIDE FUMARATE
  17. MORPHINE [Concomitant]
     Active Substance: MORPHINE
  18. ESZOPICLONE. [Concomitant]
     Active Substance: ESZOPICLONE
  19. ATORVASTATIN [Concomitant]
     Active Substance: ATORVASTATIN
  20. LEVOFLOXACIN. [Concomitant]
     Active Substance: LEVOFLOXACIN
  21. LOSARTAN POTASSIUM. [Concomitant]
     Active Substance: LOSARTAN POTASSIUM
  22. CIPROFLOXACIN. [Concomitant]
     Active Substance: CIPROFLOXACIN
  23. XIFAXAN [Concomitant]
     Active Substance: RIFAXIMIN
  24. ONDANSETRON [Concomitant]
     Active Substance: ONDANSETRON
  25. IBUPROFEN. [Concomitant]
     Active Substance: IBUPROFEN
  26. DOXYCYCLINE HYCLATE. [Concomitant]
     Active Substance: DOXYCYCLINE HYCLATE
  27. HALOBETASOL PROP [Concomitant]
  28. TAMIFLU [Concomitant]
     Active Substance: OSELTAMIVIR PHOSPHATE
  29. ATRIPLA [Suspect]
     Active Substance: EFAVIRENZ\EMTRICITABINE\TENOFOVIR DISOPROXIL FUMARATE
     Indication: HIV INFECTION
     Dosage: UNK
     Route: 048
     Dates: start: 20090729, end: 20100519
  30. ACETAMINOPHEN. [Concomitant]
     Active Substance: ACETAMINOPHEN
  31. ACYCLOVIR [ACICLOVIR] [Concomitant]
     Active Substance: ACYCLOVIR
  32. SUCRAID [Concomitant]
     Active Substance: SACROSIDASE
  33. HYDROCODONE/ACETAMINOPHEN [Concomitant]
     Active Substance: ACETAMINOPHEN\HYDROCODONE
  34. TRUVADA [Suspect]
     Active Substance: EMTRICITABINE\TENOFOVIR DISOPROXIL FUMARATE
     Indication: HIV INFECTION
     Dosage: UNK
     Route: 048
     Dates: start: 2005, end: 20190404
  35. CLONAZEPAM. [Concomitant]
     Active Substance: CLONAZEPAM
  36. GABAPENTIN. [Concomitant]
     Active Substance: GABAPENTIN
  37. LUNESTA [Concomitant]
     Active Substance: ESZOPICLONE
  38. COMBIVIR [Concomitant]
     Active Substance: LAMIVUDINE\ZIDOVUDINE
  39. CLINDAMYCIN. [Concomitant]
     Active Substance: CLINDAMYCIN
  40. TAMSULOSIN [Concomitant]
     Active Substance: TAMSULOSIN
  41. ZYVOX [Concomitant]
     Active Substance: LINEZOLID
  42. INTELENCE [Concomitant]
     Active Substance: ETRAVIRINE
  43. REYATAZ [Concomitant]
     Active Substance: ATAZANAVIR SULFATE
  44. VIRACEPT [Concomitant]
     Active Substance: NELFINAVIR MESYLATE
  45. LEVOCETIRIZINE [Concomitant]
     Active Substance: LEVOCETIRIZINE
  46. CORDRAN [Concomitant]
     Active Substance: FLURANDRENOLIDE
  47. FORTEO [Concomitant]
     Active Substance: TERIPARATIDE
  48. FOSAMAX [Concomitant]
     Active Substance: ALENDRONATE SODIUM
  49. CRIXIVAN [Concomitant]
     Active Substance: INDINAVIR SULFATE
  50. ISENTRESS [Concomitant]
     Active Substance: RALTEGRAVIR POTASSIUM
  51. HYZAAR [Concomitant]
     Active Substance: HYDROCHLOROTHIAZIDE\LOSARTAN POTASSIUM
  52. RAMIPRIL. [Concomitant]
     Active Substance: RAMIPRIL
  53. OXYCODONE [Concomitant]
     Active Substance: OXYCODONE

REACTIONS (17)
  - Blood creatinine increased [Unknown]
  - Osteonecrosis [Unknown]
  - Chronic kidney disease [Unknown]
  - Osteoporosis [Not Recovered/Not Resolved]
  - Pathological fracture [Not Recovered/Not Resolved]
  - Pain [Not Recovered/Not Resolved]
  - Emotional distress [Not Recovered/Not Resolved]
  - Anxiety [Not Recovered/Not Resolved]
  - Fracture [Unknown]
  - Bone density decreased [Unknown]
  - Depression [Not Recovered/Not Resolved]
  - Dizziness [Unknown]
  - Osteomalacia [Unknown]
  - Arthralgia [Unknown]
  - Economic problem [Not Recovered/Not Resolved]
  - Bone loss [Unknown]
  - Nausea [Unknown]

NARRATIVE: CASE EVENT DATE: 201804
